FAERS Safety Report 11451784 (Version 2)
Quarter: 2015Q3

REPORT INFORMATION
  Report Type: Spontaneous
  Country: AU (occurrence: AU)
  Receive Date: 20150903
  Receipt Date: 20150911
  Transmission Date: 20151125
  Serious: Yes (Hospitalization, Disabling, Other)
  Sender: FDA-Public Use
  Company Number: AU-JNJFOC-20150822806

PATIENT
  Age: 43 Year
  Sex: Male

DRUGS (2)
  1. PALIPERIDONE PALMITATE [Suspect]
     Active Substance: PALIPERIDONE PALMITATE
     Indication: SCHIZOPHRENIA
     Route: 030
     Dates: start: 20150721
  2. RISPERDAL CONSTA [Suspect]
     Active Substance: RISPERIDONE
     Indication: SCHIZOPHRENIA
     Route: 030
     Dates: end: 20150707

REACTIONS (5)
  - Psychomotor retardation [Recovering/Resolving]
  - Incontinence [Recovered/Resolved]
  - Mood altered [Unknown]
  - Dysphagia [Recovering/Resolving]
  - Parkinsonism [Unknown]

NARRATIVE: CASE EVENT DATE: 201508
